FAERS Safety Report 7190346-9 (Version None)
Quarter: 2010Q4

REPORT INFORMATION
  Report Type: 
  Country: None (occurrence: None)
  Receive Date: 20101223
  Receipt Date: 20101214
  Transmission Date: 20110411
  Serious: Yes (Hospitalization)
  Sender: FDA-Public Use
  Company Number: CO-PERRIGO-10CO015648

PATIENT
  Age: 27 Year
  Sex: Male

DRUGS (7)
  1. IBUPROFEN RX 600 MG 167 [Suspect]
     Indication: INTENTIONAL OVERDOSE
     Dosage: 6000 MG, SINGLE
     Route: 048
  2. DEXKETOPROFEN [Suspect]
     Indication: INTENTIONAL OVERDOSE
     Dosage: 150 MG, SINGLE
     Route: 048
  3. DIAZEPAM [Suspect]
     Indication: INTENTIONAL OVERDOSE
     Dosage: 80 MG, SINGLE
     Route: 048
  4. FLURAZEPAM [Suspect]
     Indication: INTENTIONAL OVERDOSE
     Dosage: 240 MG, UNK
     Route: 048
  5. RUPATADINE [Suspect]
     Indication: INTENTIONAL OVERDOSE
     Dosage: 100 MG, SINGLE
     Route: 048
  6. MIRTAZAPINE [Suspect]
     Indication: INTENTIONAL OVERDOSE
     Dosage: UNK
     Route: 048
  7. CIPROFLOXACIN [Suspect]
     Indication: INTENTIONAL OVERDOSE
     Dosage: UNK
     Route: 048

REACTIONS (11)
  - ACID BASE BALANCE ABNORMAL [None]
  - ANURIA [None]
  - ASPIRATION BRONCHIAL [None]
  - BLOOD CREATINE INCREASED [None]
  - BLOOD CREATINE PHOSPHOKINASE INCREASED [None]
  - DEPRESSED LEVEL OF CONSCIOUSNESS [None]
  - ELECTROCARDIOGRAM ABNORMAL [None]
  - OVERDOSE [None]
  - RENAL FAILURE ACUTE [None]
  - STUPOR [None]
  - VISION BLURRED [None]
